FAERS Safety Report 13084958 (Version 1)
Quarter: 2017Q1

REPORT INFORMATION
  Report Type: Spontaneous
  Country: US (occurrence: US)
  Receive Date: 20170104
  Receipt Date: 20170104
  Transmission Date: 20170428
  Serious: Yes (Other)
  Sender: FDA-Public Use
  Company Number: US-PFIZER INC-2016054837

PATIENT
  Age: 28 Year
  Sex: Female
  Weight: 73 kg

DRUGS (21)
  1. FOLIC ACID. [Concomitant]
     Active Substance: FOLIC ACID
     Dosage: 800 UG, DAILY
     Route: 048
     Dates: start: 20151129, end: 20160126
  2. PRENATAL VITAMINS [Concomitant]
     Active Substance: VITAMINS
     Dosage: UNK [WITH DHA]
     Dates: start: 20151101
  3. PRENATAL VITAMINS [Concomitant]
     Active Substance: VITAMINS
     Dosage: 1 DF, DAILY [WITH DHA]
     Route: 048
     Dates: start: 20151129, end: 20160126
  4. VITAMIN B6 [Concomitant]
     Active Substance: PYRIDOXINE HYDROCHLORIDE
     Dosage: 100 MG, DAILY
     Dates: start: 20150128
  5. ZOFRAN [Concomitant]
     Active Substance: ONDANSETRON HYDROCHLORIDE
     Indication: VOMITING
     Dosage: 4 MG, UNK (FREQ: 2; UNIT: WK)
     Route: 048
     Dates: start: 20160415, end: 20160829
  6. DHA [Concomitant]
     Active Substance: DIETARY SUPPLEMENT
     Dosage: UNK [COMPONENT OF NATURE MADE PNV]
     Route: 048
     Dates: start: 20151101
  7. DHA [Concomitant]
     Active Substance: DIETARY SUPPLEMENT
     Dosage: 1 DF, DAILY UNK [COMPONENT OF NATURE MADE PNV]
     Route: 048
     Dates: start: 20151129, end: 20160126
  8. PRENATAL VITAMINS [Concomitant]
     Active Substance: VITAMINS
     Indication: PREGNANCY
     Dosage: UNK, DAILY
     Dates: start: 20150111
  9. PRENATAL VITAMINS [Concomitant]
     Active Substance: VITAMINS
     Dosage: 2 DF, DAILY [WITH DHA]
     Route: 048
     Dates: start: 20160127, end: 20160829
  10. PRENATAL VITAMINS [Concomitant]
     Active Substance: VITAMINS
     Dosage: UNK, DAILY
     Dates: start: 201601, end: 201609
  11. CAFFEINE. [Concomitant]
     Active Substance: CAFFEINE
     Dosage: UNK (DOSE: 1; UNIT: SERVING; FREQ: 3; UNIT: WK)
     Route: 048
     Dates: start: 20151129, end: 20160829
  12. ZOFRAN [Concomitant]
     Active Substance: ONDANSETRON HYDROCHLORIDE
     Indication: NAUSEA
     Dosage: 4 MG, UNK (FREQ: 4; UNIT: WK)
     Route: 048
     Dates: start: 20160404, end: 20160414
  13. FLU [Concomitant]
     Active Substance: INFLUENZA VIRUS VACCINE
     Indication: IMMUNISATION
     Dosage: 1 DF, SINGLE
     Dates: start: 20151014, end: 20151014
  14. ZOFRAN [Concomitant]
     Active Substance: ONDANSETRON HYDROCHLORIDE
     Dosage: 4 MG, AS NEEDED
     Dates: start: 201603, end: 201608
  15. XELJANZ [Suspect]
     Active Substance: TOFACITINIB CITRATE
     Indication: RHEUMATOID ARTHRITIS
     Dosage: 5 MG, 2X/DAY
     Route: 048
     Dates: start: 20140801
  16. TDAP IPV [Concomitant]
     Active Substance: DIPHTHERIA AND TETANUS TOXOIDS AND ACELLULAR PERTUSSIS ADSORBED AND INACTIVATED POLIOVIRUS VACCINE
     Indication: IMMUNISATION
     Dosage: 1 DF, SINGLE
     Route: 030
     Dates: start: 20160715, end: 20160715
  17. VITAMIN B6 [Concomitant]
     Active Substance: PYRIDOXINE HYDROCHLORIDE
     Indication: NAUSEA
     Dosage: 100 MG, DAILY
     Route: 048
     Dates: start: 20160127, end: 20160413
  18. XELJANZ [Suspect]
     Active Substance: TOFACITINIB CITRATE
     Indication: JUVENILE IDIOPATHIC ARTHRITIS
     Dosage: 5 MG, DAILY [FREQ: 2; UNIT: DAY]
     Dates: start: 20140801, end: 20160829
  19. CAFFEINE. [Concomitant]
     Active Substance: CAFFEINE
     Dosage: UNK (DOSE: 1; UNIT: SERVING; FREQ: 2; UNIT: WK)
     Route: 048
     Dates: start: 20151129, end: 20160731
  20. DHA [Concomitant]
     Active Substance: DIETARY SUPPLEMENT
     Dosage: 2 DF, DAILY [COMPONENT OF [PHARMACY] PNV]
     Route: 048
     Dates: start: 20160127, end: 20160829
  21. FOLIC ACID. [Concomitant]
     Active Substance: FOLIC ACID
     Dosage: 1 G, DAILY
     Route: 048
     Dates: start: 20160415, end: 20160829

REACTIONS (1)
  - Gestational hypertension [Unknown]
